FAERS Safety Report 9071568 (Version 1)
Quarter: 2013Q1

REPORT INFORMATION
  Report Type: Spontaneous
  Country: US (occurrence: US)
  Receive Date: 20130206
  Receipt Date: 20130206
  Transmission Date: 20140127
  Serious: No
  Sender: FDA-Public Use
  Company Number: US-ALLERGAN-1212766US

PATIENT
  Sex: Female

DRUGS (5)
  1. RESTASIS? [Suspect]
     Indication: DRY EYE
     Dosage: 2 GTT, QPM
     Route: 047
  2. RESTASIS? [Suspect]
     Dosage: 2 GTT, UNK
     Route: 047
     Dates: start: 201208
  3. UNSPECIFIED INGREDIENT [Suspect]
     Indication: PRODUCT USED FOR UNKNOWN INDICATION
  4. SYSTANE [Concomitant]
     Indication: PRODUCT USED FOR UNKNOWN INDICATION
  5. CELEBREX [Concomitant]
     Indication: ARTHRITIS

REACTIONS (7)
  - Inappropriate schedule of drug administration [Unknown]
  - Scleral hyperaemia [Recovering/Resolving]
  - Lacrimation increased [Recovering/Resolving]
  - Eye irritation [Unknown]
  - Eye pain [Recovered/Resolved]
  - Eye pain [Unknown]
  - Eye pain [Recovered/Resolved]
